FAERS Safety Report 12614849 (Version 11)
Quarter: 2017Q4

REPORT INFORMATION
  Report Type: Report from Study
  Country: NL (occurrence: NL)
  Receive Date: 20160802
  Receipt Date: 20171107
  Transmission Date: 20180320
  Serious: Yes (Death, Hospitalization)
  Sender: FDA-Public Use
  Company Number: NL-ROCHE-1802672

PATIENT
  Age: 73 Year
  Sex: Male
  Weight: 84.2 kg

DRUGS (20)
  1. PACLITAXEL. [Suspect]
     Active Substance: PACLITAXEL
     Indication: NON-SMALL CELL LUNG CANCER STAGE IV
     Dosage: MOST RECENT DOSE OF PACLITAXEL WAS ADMINISTERED ON 14/JUL/2016 PRIOR TO ONSET OF ADVERSE EVENTS.?200
     Route: 042
     Dates: start: 20160714
  2. METFORMIN [Concomitant]
     Active Substance: METFORMIN HYDROCHLORIDE
     Indication: DIABETES MELLITUS
     Route: 065
     Dates: start: 20160419
  3. SOTALOL. [Concomitant]
     Active Substance: SOTALOL
     Indication: CORONARY ARTERY INSUFFICIENCY
     Route: 065
     Dates: start: 2001
  4. OXAZEPAM. [Concomitant]
     Active Substance: OXAZEPAM
     Indication: PROPHYLAXIS
     Route: 065
     Dates: start: 201601
  5. ASCAL (CARBASALATE CALCIUM) [Concomitant]
     Active Substance: CARBASPIRIN CALCIUM
     Indication: CORONARY ARTERY INSUFFICIENCY
     Route: 065
     Dates: start: 2001
  6. ATEZOLIZUMAB. [Suspect]
     Active Substance: ATEZOLIZUMAB
     Indication: NON-SMALL CELL LUNG CANCER STAGE IV
     Dosage: MOST RECENT DOSE OF ATEZOLIZUMAB WAS ADMINISTERED ON 14/JUL/2016 PRIOR TO ONSET OF ADVERSE EVENTS.
     Route: 042
     Dates: start: 20160714
  7. BEVACIZUMAB. [Suspect]
     Active Substance: BEVACIZUMAB
     Indication: NON-SMALL CELL LUNG CANCER STAGE IV
     Dosage: MOST RECENT DOSE OF BEVACIZUMAB WAS ADMINISTERED ON 14/JUL/2016 PRIOR TO ONSET OF ADVERSE EVENTS.?15
     Route: 042
     Dates: start: 20160714
  8. NITROSPRAY [Concomitant]
     Active Substance: NITROGLYCERIN
     Indication: CORONARY ARTERY INSUFFICIENCY
     Route: 065
     Dates: start: 2001
  9. VALSARTAN. [Concomitant]
     Active Substance: VALSARTAN
     Indication: CORONARY ARTERY INSUFFICIENCY
     Route: 065
     Dates: start: 2001
  10. AMLODIPINE [Concomitant]
     Active Substance: AMLODIPINE BESYLATE
     Indication: CORONARY ARTERY INSUFFICIENCY
     Route: 065
     Dates: start: 2001
  11. OXYCODON [Concomitant]
     Active Substance: OXYCODONE
     Indication: MUSCULOSKELETAL CHEST PAIN
     Route: 065
     Dates: start: 201604
  12. SPIRIVA [Concomitant]
     Active Substance: TIOTROPIUM BROMIDE MONOHYDRATE
     Indication: DYSPNOEA
     Route: 065
     Dates: start: 201604
  13. DICLOFENAC [Concomitant]
     Active Substance: DICLOFENAC
     Indication: MUSCULOSKELETAL CHEST PAIN
     Route: 065
     Dates: start: 201604
  14. CARBOPLATIN. [Suspect]
     Active Substance: CARBOPLATIN
     Indication: NON-SMALL CELL LUNG CANCER STAGE IV
     Dosage: MOST RECENT DOSE OF CARBOPLATIN WAS ADMINISTERED ON 14/JUL/2016 PRIOR TO ONSET OF ADVERSE EVENTS.?AR
     Route: 042
     Dates: start: 20160714
  15. MACROGOL [Concomitant]
     Active Substance: POLYETHYLENE GLYCOLS
     Indication: CONSTIPATION PROPHYLAXIS
     Route: 065
     Dates: start: 20160606
  16. PANTOPRAZOL [Concomitant]
     Active Substance: PANTOPRAZOLE SODIUM
     Indication: PROPHYLAXIS
     Route: 065
     Dates: start: 20160308
  17. ISOSORBID (ISOSORBIDE MONONITRATE) [Concomitant]
     Indication: CORONARY ARTERY INSUFFICIENCY
     Route: 065
     Dates: start: 2001
  18. SIMVASTATINE [Concomitant]
     Active Substance: SIMVASTATIN
     Indication: CORONARY ARTERY INSUFFICIENCY
     Route: 065
     Dates: start: 2001
  19. PARACETAMOL [Concomitant]
     Active Substance: ACETAMINOPHEN
     Indication: MUSCULOSKELETAL CHEST PAIN
     Route: 065
     Dates: start: 201604
  20. METOCLOPRAMIDE. [Concomitant]
     Active Substance: METOCLOPRAMIDE
     Indication: NAUSEA
     Route: 065
     Dates: start: 201604, end: 20160717

REACTIONS (4)
  - Febrile neutropenia [Not Recovered/Not Resolved]
  - Nausea [Not Recovered/Not Resolved]
  - Hypophosphataemia [Not Recovered/Not Resolved]
  - Febrile neutropenia [Fatal]

NARRATIVE: CASE EVENT DATE: 20160717
